FAERS Safety Report 19453634 (Version 3)
Quarter: 2021Q3

REPORT INFORMATION
  Report Type: Spontaneous
  Country: IT (occurrence: IT)
  Receive Date: 20210623
  Receipt Date: 20210903
  Transmission Date: 20211014
  Serious: Yes (Disabling)
  Sender: FDA-Public Use
  Company Number: IT-US-PROVELL PHARMACEUTICALS LLC-E2B_90083908

PATIENT
  Age: 42 Year
  Sex: Male
  Weight: 100 kg

DRUGS (1)
  1. EUTIROX [Suspect]
     Active Substance: LEVOTHYROXINE SODIUM
     Indication: PRODUCT USED FOR UNKNOWN INDICATION
     Dates: start: 20201210

REACTIONS (4)
  - Joint swelling [Recovering/Resolving]
  - Dysuria [Recovering/Resolving]
  - Tachycardia [Recovering/Resolving]
  - Muscular weakness [Recovering/Resolving]

NARRATIVE: CASE EVENT DATE: 20210101
